FAERS Safety Report 24750641 (Version 2)
Quarter: 2024Q4

REPORT INFORMATION
  Report Type: Spontaneous
  Country: HK (occurrence: HK)
  Receive Date: 20241218
  Receipt Date: 20241230
  Transmission Date: 20250115
  Serious: Yes (Other)
  Sender: AMGEN
  Company Number: HK-AMGEN-HKGSP2024242394

PATIENT
  Age: 62 Year
  Sex: Male

DRUGS (4)
  1. BEVACIZUMAB [Suspect]
     Active Substance: BEVACIZUMAB
     Indication: Lung adenocarcinoma
     Dosage: MAINTENANCE FOR 13 MONTHS
     Route: 065
  2. BRIGATINIB [Concomitant]
     Active Substance: BRIGATINIB
  3. PEMETREXED [Concomitant]
     Active Substance: PEMETREXED
  4. CARBOPLATIN [Concomitant]
     Active Substance: CARBOPLATIN

REACTIONS (2)
  - Lung adenocarcinoma [Unknown]
  - Therapy non-responder [Unknown]
